FAERS Safety Report 8799319 (Version 4)
Quarter: 2013Q1

REPORT INFORMATION
  Report Type: Spontaneous
  Country: JP (occurrence: JP)
  Receive Date: 20120920
  Receipt Date: 20130204
  Transmission Date: 20140127
  Serious: Yes (Other)
  Sender: FDA-Public Use
  Company Number: JP-009507513-1209JPN004888

PATIENT
  Age: 65 Year
  Sex: Female

DRUGS (7)
  1. FOSAPREPITANT DIMEGLUMINE [Suspect]
     Indication: PROPHYLAXIS OF NAUSEA AND VOMITING
     Dosage: 150 MG, QD
     Route: 041
     Dates: start: 2012, end: 2012
  2. FOSAPREPITANT DIMEGLUMINE [Suspect]
     Dosage: 150 MG, QD
     Route: 041
     Dates: start: 20120719, end: 20120719
  3. FOSAPREPITANT DIMEGLUMINE [Suspect]
     Dosage: 150 MG, QD
     Route: 041
     Dates: start: 20120809, end: 20120809
  4. DOCETAXEL [Concomitant]
     Indication: NON-SMALL CELL LUNG CANCER
     Dosage: UNK
     Dates: start: 20120719, end: 20120719
  5. CARBOPLATIN [Concomitant]
     Indication: NON-SMALL CELL LUNG CANCER
     Dosage: UNK
     Dates: start: 20120719, end: 20120719
  6. DEXART [Concomitant]
     Dosage: UNK
     Dates: start: 20120719, end: 20120719
  7. ALOXI [Concomitant]
     Dosage: UNK
     Dates: start: 20120719, end: 20120719

REACTIONS (5)
  - Thrombophlebitis [Not Recovered/Not Resolved]
  - Injection site pain [Not Recovered/Not Resolved]
  - Injection site swelling [Not Recovered/Not Resolved]
  - Malignant neoplasm progression [Not Recovered/Not Resolved]
  - Depression [Not Recovered/Not Resolved]
